FAERS Safety Report 5166740-4 (Version None)
Quarter: 2006Q4

REPORT INFORMATION
  Report Type: 
  Country: None (occurrence: None)
  Receive Date: 20061207
  Receipt Date: 20061130
  Transmission Date: 20070319
  Serious: Yes (Hospitalization)
  Sender: FDA-Public Use
  Company Number: CH-AVENTIS-200622307GDDC

PATIENT
  Age: 81 Year
  Sex: Male

DRUGS (8)
  1. AMARYL [Suspect]
     Route: 048
     Dates: end: 20060929
  2. NOVOMIX                            /01475801/ [Suspect]
     Route: 058
     Dates: end: 20060929
  3. CEDUR [Concomitant]
     Route: 048
  4. CALCIMAGON                         /00108001/ [Concomitant]
     Route: 048
  5. DILATREND [Concomitant]
     Route: 048
  6. ENATEC [Concomitant]
     Route: 048
  7. LASIX [Concomitant]
     Route: 048
  8. ASPIRIN [Concomitant]
     Route: 048

REACTIONS (6)
  - GENERAL PHYSICAL HEALTH DETERIORATION [None]
  - HYPERTENSION [None]
  - HYPOGLYCAEMIC COMA [None]
  - HYPOTHERMIA [None]
  - ORAL INTAKE REDUCED [None]
  - SINUS BRADYCARDIA [None]
